FAERS Safety Report 21003190 (Version 11)
Quarter: 2025Q3

REPORT INFORMATION
  Report Type: Report from Study
  Country: US (occurrence: US)
  Receive Date: 20220624
  Receipt Date: 20250919
  Transmission Date: 20251021
  Serious: Yes (Hospitalization, Other)
  Sender: TAKEDA
  Company Number: US-TAKEDA-2022TUS040971

PATIENT
  Age: 66 Year
  Sex: Male
  Weight: 88 kg

DRUGS (26)
  1. HUMAN IMMUNOGLOBULIN G\HYALURONIDASE RECOMBINANT HUMAN [Suspect]
     Active Substance: HUMAN IMMUNOGLOBULIN G\HYALURONIDASE (HUMAN RECOMBINANT)
     Indication: Primary immunodeficiency syndrome
     Dosage: 30 GRAM, Q3WEEKS
  2. HUMAN IMMUNOGLOBULIN G\HYALURONIDASE RECOMBINANT HUMAN [Suspect]
     Active Substance: HUMAN IMMUNOGLOBULIN G\HYALURONIDASE (HUMAN RECOMBINANT)
     Indication: Congenital hypogammaglobulinaemia
     Dosage: 420 MILLILITER, MONTHLY
  3. HUMAN IMMUNOGLOBULIN G\HYALURONIDASE RECOMBINANT HUMAN [Suspect]
     Active Substance: HUMAN IMMUNOGLOBULIN G\HYALURONIDASE (HUMAN RECOMBINANT)
     Dosage: 35 GRAM, Q3WEEKS
  4. PFIZER-BIONTECH COVID-19 VACCINE [Suspect]
     Active Substance: TOZINAMERAN
     Indication: COVID-19 immunisation
  5. PLAVIX [Suspect]
     Active Substance: CLOPIDOGREL BISULFATE
     Indication: Product used for unknown indication
  6. DIPHENHYDRAMINE HYDROCHLORIDE [Concomitant]
     Active Substance: DIPHENHYDRAMINE HYDROCHLORIDE
  7. ESOMEPRAZOLE MAGNESIUM [Concomitant]
     Active Substance: ESOMEPRAZOLE MAGNESIUM
  8. GLIPIZIDE [Concomitant]
     Active Substance: GLIPIZIDE
  9. JARDIANCE [Concomitant]
     Active Substance: EMPAGLIFLOZIN
  10. EPINEPHRINE [Concomitant]
     Active Substance: EPINEPHRINE
  11. NURTEC ODT [Concomitant]
     Active Substance: RIMEGEPANT SULFATE
  12. RESTASIS [Concomitant]
     Active Substance: CYCLOSPORINE
  13. ACETAMINOPHEN [Concomitant]
     Active Substance: ACETAMINOPHEN
  14. AIMOVIG [Concomitant]
     Active Substance: ERENUMAB-AOOE
  15. TRINTELLIX [Concomitant]
     Active Substance: VORTIOXETINE HYDROBROMIDE
  16. TRULICITY [Concomitant]
     Active Substance: DULAGLUTIDE
  17. SODIUM BICARBONATE [Concomitant]
     Active Substance: SODIUM BICARBONATE
  18. SODIUM CHLORIDE [Concomitant]
     Active Substance: SODIUM CHLORIDE
  19. LEVOTHYROXINE SODIUM [Concomitant]
     Active Substance: LEVOTHYROXINE SODIUM
  20. BELSOMRA [Concomitant]
     Active Substance: SUVOREXANT
  21. CHLORZOXAZONE [Concomitant]
     Active Substance: CHLORZOXAZONE
  22. LINZESS [Concomitant]
     Active Substance: LINACLOTIDE
  23. PREGABALIN [Concomitant]
     Active Substance: PREGABALIN
  24. Lmx [Concomitant]
  25. PANTOPRAZOLE SODIUM [Concomitant]
     Active Substance: PANTOPRAZOLE SODIUM
  26. TADALAFIL [Concomitant]
     Active Substance: TADALAFIL

REACTIONS (14)
  - Pneumonia [Unknown]
  - Skin abrasion [Unknown]
  - Appendicitis [Unknown]
  - COVID-19 pneumonia [Unknown]
  - Inappropriate schedule of product administration [Unknown]
  - Haemorrhagic diathesis [Unknown]
  - Obstruction [Unknown]
  - Increased tendency to bruise [Unknown]
  - Insurance issue [Unknown]
  - Sinusitis [Unknown]
  - Drug hypersensitivity [Unknown]
  - Product use issue [Unknown]
  - Product dose omission issue [Unknown]
  - Heat stroke [Unknown]

NARRATIVE: CASE EVENT DATE: 20240226
